FAERS Safety Report 6568886-2 (Version None)
Quarter: 2010Q1

REPORT INFORMATION
  Report Type: 
  Country: None (occurrence: None)
  Receive Date: 20100128
  Receipt Date: 20100116
  Transmission Date: 20100710
  Serious: Yes (Hospitalization)
  Sender: FDA-Public Use
  Company Number: 2010AP000112

PATIENT
  Age: 61 Year
  Sex: Male

DRUGS (1)
  1. BENAZEPRIL HYDROCHLORIDE [Suspect]
     Dosage: 20 MG;QD

REACTIONS (5)
  - ABDOMINAL PAIN [None]
  - FLATULENCE [None]
  - INFLAMMATION [None]
  - SMALL BOWEL ANGIOEDEMA [None]
  - VOMITING [None]
